FAERS Safety Report 4876958-3 (Version None)
Quarter: 2006Q1

REPORT INFORMATION
  Report Type: 
  Country: None (occurrence: None)
  Receive Date: 20060110
  Receipt Date: 20051221
  Transmission Date: 20060701
  Serious: Yes (Hospitalization)
  Sender: FDA-Public Use
  Company Number: IL-NOVOPROD-249533

PATIENT
  Age: 14 Year
  Sex: Male
  Weight: 46 kg

DRUGS (7)
  1. LEVEMIR [Suspect]
     Indication: DIABETES MELLITUS
     Dosage: 14 IU, QD
     Dates: start: 20051215
  2. HUMALOG [Concomitant]
     Indication: DIABETES MELLITUS
     Dates: start: 20050501
  3. PREDNISOLONE [Concomitant]
     Dosage: 15 MG, QD
     Route: 048
  4. IMURAN [Concomitant]
     Dosage: 50 MG, QD
     Route: 048
  5. OXYCOD [Concomitant]
     Dosage: 5 UNK, UNK
     Route: 048
  6. NAXYN [Concomitant]
     Dosage: 250 MG, QD
     Route: 048
  7. CALTRATE [Concomitant]
     Dosage: 1200 MG, QD
     Route: 048

REACTIONS (1)
  - HEPATITIS [None]
